FAERS Safety Report 9230989 (Version 46)
Quarter: 2020Q2

REPORT INFORMATION
  Report Type: Report from Study
  Country: CA (occurrence: CA)
  Receive Date: 20130415
  Receipt Date: 20200611
  Transmission Date: 20200714
  Serious: Yes (Other)
  Sender: FDA-Public Use
  Company Number: CA-ROCHE-1173983

PATIENT
  Age: 51 Year
  Sex: Female
  Weight: 83 kg

DRUGS (35)
  1. RITUXAN [Suspect]
     Active Substance: RITUXIMAB
     Indication: RHEUMATOID ARTHRITIS
     Dosage: ON 21/NOV/2018, SHE RECEIVED MOST RECENT DOSE.
     Route: 042
     Dates: start: 20171114
  2. SYNTHROID [Concomitant]
     Active Substance: LEVOTHYROXINE SODIUM
     Route: 048
     Dates: start: 201503
  3. BENZYDAMINE [Concomitant]
     Active Substance: BENZYDAMINE
  4. ACTEMRA [Suspect]
     Active Substance: TOCILIZUMAB
     Indication: RHEUMATOID ARTHRITIS
     Route: 042
     Dates: start: 20121121, end: 20170622
  5. ACTEMRA [Suspect]
     Active Substance: TOCILIZUMAB
     Route: 042
     Dates: start: 20151217
  6. RELAFEN [Concomitant]
     Active Substance: NABUMETONE
     Route: 065
  7. XELJANZ [Concomitant]
     Active Substance: TOFACITINIB CITRATE
  8. MOXIFLOXACIN. [Concomitant]
     Active Substance: MOXIFLOXACIN
     Dosage: ONCE DAILY FOR 5 DAYS
     Route: 065
  9. PREDNISONE. [Concomitant]
     Active Substance: PREDNISONE
     Route: 065
  10. DILAUDID [Concomitant]
     Active Substance: HYDROMORPHONE HYDROCHLORIDE
  11. ACETAMINOPHEN. [Concomitant]
     Active Substance: ACETAMINOPHEN
     Indication: PREMEDICATION
     Route: 048
     Dates: start: 20171114
  12. MOXIFLOXACIN. [Concomitant]
     Active Substance: MOXIFLOXACIN
     Dosage: ONCE DAILY FOR 10 DAYS
     Route: 065
     Dates: start: 20190319
  13. METHOTREXATE. [Suspect]
     Active Substance: METHOTREXATE
     Indication: PAIN
     Route: 065
  14. HYDROXYCHLOROQUINE [Concomitant]
     Active Substance: HYDROXYCHLOROQUINE
     Route: 065
  15. ELAVIL [Concomitant]
     Active Substance: AMITRIPTYLINE HYDROCHLORIDE
     Route: 065
  16. ACTONEL [Concomitant]
     Active Substance: RISEDRONATE SODIUM
     Route: 065
  17. ADVAIR HFA [Concomitant]
     Active Substance: FLUTICASONE PROPIONATE\SALMETEROL XINAFOATE
     Route: 065
  18. DIPHENHYDRAMINE. [Concomitant]
     Active Substance: DIPHENHYDRAMINE
     Indication: PREMEDICATION
     Route: 048
     Dates: start: 20171114
  19. CANDESARTAN. [Concomitant]
     Active Substance: CANDESARTAN
  20. HYDROMORPHONE [Concomitant]
     Active Substance: HYDROMORPHONE
  21. ACTEMRA [Suspect]
     Active Substance: TOCILIZUMAB
     Route: 042
     Dates: start: 20160809, end: 20170622
  22. BUSCOPAN [Concomitant]
     Active Substance: BUTYLSCOPOLAMINE BROMIDE
  23. MOMETASONE [Concomitant]
     Active Substance: MOMETASONE
     Dosage: INHALE 2 SPRAYS IN EACH NOSTRIL ONCE DAILY
     Route: 065
     Dates: start: 20190319
  24. VENTOLIN [Concomitant]
     Active Substance: ALBUTEROL SULFATE
     Route: 065
  25. FOLIC ACID. [Concomitant]
     Active Substance: FOLIC ACID
  26. AMITRIPTYLINE [Concomitant]
     Active Substance: AMITRIPTYLINE
  27. PARIET [Concomitant]
     Active Substance: RABEPRAZOLE SODIUM
     Route: 065
  28. METHYLPREDNISOLONE. [Concomitant]
     Active Substance: METHYLPREDNISOLONE
     Indication: PREMEDICATION
     Route: 042
     Dates: start: 20171114
  29. METFORMIN [Concomitant]
     Active Substance: METFORMIN HYDROCHLORIDE
     Route: 065
  30. ACTEMRA [Suspect]
     Active Substance: TOCILIZUMAB
     Route: 042
     Dates: start: 20130601
  31. ACTEMRA [Suspect]
     Active Substance: TOCILIZUMAB
     Route: 042
     Dates: start: 20131023
  32. OXYCODONE [Suspect]
     Active Substance: OXYCODONE
     Indication: PAIN
     Route: 065
  33. TYLENOL WITH CODEINE [Suspect]
     Active Substance: ACETAMINOPHEN\CODEINE PHOSPHATE
     Indication: PAIN
     Route: 065
  34. SYNTHROID [Concomitant]
     Active Substance: LEVOTHYROXINE SODIUM
     Route: 065
     Dates: start: 20141029
  35. ARAVA [Concomitant]
     Active Substance: LEFLUNOMIDE

REACTIONS (45)
  - Rash [Not Recovered/Not Resolved]
  - Anaemia [Not Recovered/Not Resolved]
  - Pharyngitis [Recovered/Resolved]
  - Liver function test increased [Not Recovered/Not Resolved]
  - Pyrexia [Not Recovered/Not Resolved]
  - Cystitis [Unknown]
  - Upper-airway cough syndrome [Unknown]
  - Pneumonia [Unknown]
  - Oropharyngeal pain [Not Recovered/Not Resolved]
  - Weight increased [Unknown]
  - Blood pressure systolic increased [Unknown]
  - Enteritis infectious [Not Recovered/Not Resolved]
  - Hypothyroidism [Not Recovered/Not Resolved]
  - Palpitations [Unknown]
  - Weight decreased [Unknown]
  - Diarrhoea [Not Recovered/Not Resolved]
  - Diverticulitis [Unknown]
  - Diverticulitis [Unknown]
  - Nail infection [Recovered/Resolved]
  - Infusion related reaction [Unknown]
  - Cough [Not Recovered/Not Resolved]
  - Drug ineffective [Unknown]
  - Blood pressure systolic abnormal [Unknown]
  - Inflammation [Not Recovered/Not Resolved]
  - Fungal infection [Recovered/Resolved]
  - Blood cholesterol increased [Unknown]
  - Urinary tract infection [Not Recovered/Not Resolved]
  - Cystitis [Not Recovered/Not Resolved]
  - Blood pressure systolic increased [Unknown]
  - Sinusitis [Not Recovered/Not Resolved]
  - Blood pressure diastolic abnormal [Unknown]
  - Basal cell carcinoma [Recovering/Resolving]
  - Blood pressure increased [Unknown]
  - Blood pressure increased [Unknown]
  - Therapeutic product effect decreased [Unknown]
  - Limb mass [Recovered/Resolved]
  - Gastrointestinal haemorrhage [Unknown]
  - Pneumonia [Unknown]
  - Heart rate increased [Unknown]
  - Hypertension [Unknown]
  - Oxygen saturation decreased [Unknown]
  - Basal cell carcinoma [Not Recovered/Not Resolved]
  - Hypersensitivity [Not Recovered/Not Resolved]
  - Rubella [Not Recovered/Not Resolved]
  - Nasopharyngitis [Recovered/Resolved]

NARRATIVE: CASE EVENT DATE: 2013
